FAERS Safety Report 7761001-9 (Version None)
Quarter: 2011Q3

REPORT INFORMATION
  Report Type: 
  Country: None (occurrence: None)
  Receive Date: 20110920
  Receipt Date: 20110914
  Transmission Date: 20111222
  Serious: Yes (Hospitalization)
  Sender: FDA-Public Use
  Company Number: US-BIOGENIDEC-2011BI031655

PATIENT
  Age: 50 Year
  Sex: Female

DRUGS (6)
  1. NEURONTIN [Concomitant]
     Indication: PARAESTHESIA
  2. LORAZEPAM [Concomitant]
     Indication: ANXIETY
  3. ZANAFLEX [Concomitant]
     Indication: MUSCLE SPASTICITY
  4. TYSABRI [Suspect]
     Indication: MULTIPLE SCLEROSIS
     Route: 042
     Dates: start: 20110503
  5. ZYRTEC [Concomitant]
     Indication: MULTIPLE ALLERGIES
  6. NUVIGIL [Concomitant]
     Indication: FATIGUE

REACTIONS (1)
  - DEPRESSION [None]
